FAERS Safety Report 11603424 (Version 1)
Quarter: 2015Q4

REPORT INFORMATION
  Report Type: Spontaneous
  Country: US (occurrence: None)
  Receive Date: 20151005
  Receipt Date: 20151005
  Transmission Date: 20160304
  Serious: No
  Sender: FDA-Public Use
  Company Number: None

PATIENT
  Age: 53 Year
  Sex: Female
  Weight: 72.58 kg

DRUGS (2)
  1. BI-ESTROGEN/PROGESTERONE/TESTOSTERONE [Concomitant]
  2. AMOXICILLIN 500MG [Suspect]
     Active Substance: AMOXICILLIN
     Indication: TOOTH EXTRACTION
     Route: 048
     Dates: start: 20150924, end: 20150930

REACTIONS (8)
  - Oropharyngeal pain [None]
  - Rash generalised [None]
  - Anal pruritus [None]
  - Face oedema [None]
  - Rash pruritic [None]
  - Rash papular [None]
  - Rash erythematous [None]
  - Oral pain [None]

NARRATIVE: CASE EVENT DATE: 20151001
